FAERS Safety Report 24196300 (Version 2)
Quarter: 2024Q3

REPORT INFORMATION
  Report Type: Spontaneous
  Country: JP (occurrence: JP)
  Receive Date: 20240809
  Receipt Date: 20240830
  Transmission Date: 20241017
  Serious: Yes (Death)
  Sender: RADIUS PHARM
  Company Number: JP-RADIUS HEALTH, INC.-2024JP005783

PATIENT
  Age: 78 Year
  Sex: Female

DRUGS (5)
  1. ABALOPARATIDE [Suspect]
     Active Substance: ABALOPARATIDE
     Indication: Osteoporosis
     Dosage: 80 MICROGRAM, QD
     Route: 058
     Dates: start: 20231006, end: 20240719
  2. METHOTREXATE [Concomitant]
     Active Substance: METHOTREXATE
     Indication: Rheumatoid arthritis
     Dosage: 2 MG / WEEK
     Route: 048
  3. PREDNISOLONE [Concomitant]
     Active Substance: PREDNISOLONE
     Indication: Rheumatoid arthritis
     Route: 048
  4. MIROGABALIN BESYLATE [Concomitant]
     Active Substance: MIROGABALIN BESYLATE
     Indication: Neuralgia
     Dosage: 10 MG/ DAY
     Route: 048
  5. HALCION [Concomitant]
     Active Substance: TRIAZOLAM
     Indication: Insomnia
     Dosage: 0.125 MILLIGRAM/ DAY
     Route: 048

REACTIONS (1)
  - Death [Fatal]

NARRATIVE: CASE EVENT DATE: 20240720
